FAERS Safety Report 11626478 (Version 1)
Quarter: 2015Q4

REPORT INFORMATION
  Report Type: Spontaneous
  Country: US (occurrence: US)
  Receive Date: 20151013
  Receipt Date: 20151013
  Transmission Date: 20160304
  Serious: No
  Sender: FDA-Public Use
  Company Number: US-ROCHE-1593049

PATIENT
  Age: 51 Year
  Sex: Male

DRUGS (5)
  1. TOPAMAX [Concomitant]
     Active Substance: TOPIRAMATE
  2. VIMPAT [Concomitant]
     Active Substance: LACOSAMIDE
  3. METFORMIN [Concomitant]
     Active Substance: METFORMIN HYDROCHLORIDE
     Route: 065
  4. ZOCOR [Concomitant]
     Active Substance: SIMVASTATIN
  5. ZELBORAF [Suspect]
     Active Substance: VEMURAFENIB
     Indication: UNEVALUABLE EVENT
     Route: 048
     Dates: start: 20150424

REACTIONS (4)
  - Fatigue [Unknown]
  - Pain [Unknown]
  - Seizure [Unknown]
  - Vomiting [Unknown]

NARRATIVE: CASE EVENT DATE: 201505
